FAERS Safety Report 7786368-7 (Version None)
Quarter: 2011Q3

REPORT INFORMATION
  Report Type: 
  Country: None (occurrence: None)
  Receive Date: 20110929
  Receipt Date: 20110926
  Transmission Date: 20111222
  Serious: Yes (Life-Threatening)
  Sender: FDA-Public Use
  Company Number: PHHY2011FR85428

PATIENT
  Age: 40 Year
  Sex: Male

DRUGS (2)
  1. CLOZAPINE [Suspect]
  2. BENZODIAZEPINES [Concomitant]

REACTIONS (7)
  - PERICARDIAL EFFUSION [None]
  - INFLAMMATION [None]
  - CARDIOMYOPATHY [None]
  - CARDIAC FAILURE [None]
  - EJECTION FRACTION DECREASED [None]
  - C-REACTIVE PROTEIN INCREASED [None]
  - CARDIAC CIRRHOSIS [None]
